FAERS Safety Report 6971098-1 (Version None)
Quarter: 2010Q3

REPORT INFORMATION
  Report Type: 
  Country: None (occurrence: None)
  Receive Date: 20100908
  Receipt Date: 20100827
  Transmission Date: 20110219
  Serious: Yes (Other)
  Sender: FDA-Public Use
  Company Number: US-PFIZER INC-2010109050

PATIENT
  Sex: Male
  Weight: 89.811 kg

DRUGS (10)
  1. TOVIAZ [Suspect]
     Dosage: 1 MG, 1X/DAY
     Route: 048
     Dates: start: 20100815
  2. CYMBALTA [Concomitant]
     Dosage: UNK
  3. NAMENDA [Concomitant]
     Dosage: UNK
  4. LISINOPRIL [Concomitant]
     Dosage: UNK
  5. PLAVIX [Concomitant]
     Dosage: UNK
  6. ACETYLSALICYLIC ACID [Concomitant]
     Dosage: UNK
  7. MOBIC [Concomitant]
     Dosage: UNK
  8. SIMVASTATIN [Concomitant]
     Dosage: UNK
  9. ZANTAC [Concomitant]
  10. COLACE [Concomitant]
     Dosage: UNK

REACTIONS (1)
  - VISION BLURRED [None]
